FAERS Safety Report 21304498 (Version 1)
Quarter: 2022Q3

REPORT INFORMATION
  Report Type: Spontaneous
  Country: US (occurrence: None)
  Receive Date: 20220907
  Receipt Date: 20220907
  Transmission Date: 20221026
  Serious: No
  Sender: FDA-Public Use
  Company Number: US-ARIS GLOBAL-202108-1474

PATIENT
  Age: 76 Year
  Sex: Female
  Weight: 83.990 kg

DRUGS (14)
  1. OXERVATE [Suspect]
     Active Substance: CENEGERMIN-BKBJ
     Indication: Neurotrophic keratopathy
     Route: 047
     Dates: start: 20210818
  2. OXERVATE [Suspect]
     Active Substance: CENEGERMIN-BKBJ
     Indication: Hypoaesthesia eye
  3. ROPINIROLE HYDROCHLORIDE [Concomitant]
     Active Substance: ROPINIROLE HYDROCHLORIDE
  4. SALINE NASAL GEL [Concomitant]
  5. XIIDRA [Concomitant]
     Active Substance: LIFITEGRAST
     Indication: Dry eye
     Dosage: 5% DROPERETTE
     Route: 061
     Dates: start: 20200903
  6. IBUPROFEN [Concomitant]
     Active Substance: IBUPROFEN
  7. ACYCLOVIR [Concomitant]
     Active Substance: ACYCLOVIR
  8. VENLAFAXINE HYDROCHLORIDE [Concomitant]
     Active Substance: VENLAFAXINE HYDROCHLORIDE
  9. ALBUTEROL SULFATE [Concomitant]
     Active Substance: ALBUTEROL SULFATE
  10. ALBUTEROL SULFATE [Concomitant]
     Active Substance: ALBUTEROL SULFATE
  11. TRAZODONE HYDROCHLORIDE [Concomitant]
     Active Substance: TRAZODONE HYDROCHLORIDE
  12. OMEPRAZOLE [Concomitant]
     Active Substance: OMEPRAZOLE
  13. TOBRADEX [Concomitant]
     Active Substance: DEXAMETHASONE\TOBRAMYCIN
  14. REFRESH PF [Concomitant]
     Indication: Dry eye
     Route: 061

REACTIONS (6)
  - Eye swelling [Not Recovered/Not Resolved]
  - Vision blurred [Unknown]
  - Foreign body sensation in eyes [Unknown]
  - Eye contusion [Unknown]
  - Eye discharge [Unknown]
  - Eye inflammation [Unknown]

NARRATIVE: CASE EVENT DATE: 20210801
